FAERS Safety Report 7139329-5 (Version None)
Quarter: 2010Q4

REPORT INFORMATION
  Report Type: 
  Country: None (occurrence: None)
  Receive Date: 20101206
  Receipt Date: 20101124
  Transmission Date: 20110411
  Serious: Yes (Death)
  Sender: FDA-Public Use
  Company Number: JP-ELI_LILLY_AND_COMPANY-JP201011006639

PATIENT
  Age: 85 Year
  Sex: Female

DRUGS (10)
  1. FORTEO [Suspect]
     Indication: OSTEOPOROTIC FRACTURE
     Dosage: 20 UG, OTHER
     Route: 058
     Dates: start: 20101104, end: 20101115
  2. BONALON [Concomitant]
     Indication: OSTEOPOROSIS
     Dosage: UNK, UNK
     Route: 048
     Dates: end: 20101028
  3. ALFAROL [Concomitant]
     Indication: OSTEOPOROSIS
     Dates: end: 20101028
  4. MEVALOTIN /JPN/ [Concomitant]
     Dosage: 5 MG, UNK
     Route: 048
  5. FOIPAN [Concomitant]
     Indication: PANCREATITIS
     Route: 048
  6. MAGNESIUM OXIDE [Concomitant]
     Indication: CONSTIPATION
     Route: 048
  7. PROPIVERINE HYDROCHLORIDE [Concomitant]
  8. MUCOSTA [Concomitant]
  9. CONSTAN [Concomitant]
     Dosage: 0.4 MG, UNK
  10. TAGAMET                            /00397401/ [Concomitant]
     Dosage: 200 MG, UNK

REACTIONS (1)
  - MYOCARDIAL ISCHAEMIA [None]
